FAERS Safety Report 8452069-5 (Version None)
Quarter: 2012Q2

REPORT INFORMATION
  Report Type: 
  Country: None (occurrence: None)
  Receive Date: 20120620
  Receipt Date: 20120612
  Transmission Date: 20120825
  Serious: Yes (Death, Hospitalization)
  Sender: FDA-Public Use
  Company Number: BR-BRISTOL-MYERS SQUIBB COMPANY-16540973

PATIENT
  Age: 72 Year
  Sex: Male

DRUGS (1)
  1. BARACLUDE [Suspect]
     Indication: HEPATITIS B
     Dosage: FOR APPROXIMATELY 10 MONTHS
     Dates: start: 20110101

REACTIONS (3)
  - ASCITES [None]
  - DEATH [None]
  - RENAL IMPAIRMENT [None]
